FAERS Safety Report 18580438 (Version 7)
Quarter: 2021Q3

REPORT INFORMATION
  Report Type: Report from Study
  Country: US (occurrence: US)
  Receive Date: 20201204
  Receipt Date: 20210813
  Transmission Date: 20211014
  Serious: Yes (Hospitalization, Other)
  Sender: FDA-Public Use
  Company Number: US-VERTEX PHARMACEUTICALS-2020-023773

PATIENT
  Age: 52 Year
  Sex: Female

DRUGS (13)
  1. TRIKAFTA [Suspect]
     Active Substance: ELEXACAFTOR\IVACAFTOR\TEZACAFTOR
     Dosage: ELIMINATE THE BLUE PILL FOR A WEEK,THEN ONE ORANGE PILL IN THE MORNING FOR ONE WEEK
     Route: 048
     Dates: start: 202104, end: 20210501
  2. PROMETHAZINE [Concomitant]
     Active Substance: PROMETHAZINE HYDROCHLORIDE
  3. VITAMIN C [Concomitant]
     Active Substance: ASCORBIC ACID
  4. TRIKAFTA [Suspect]
     Active Substance: ELEXACAFTOR\IVACAFTOR\TEZACAFTOR
     Dosage: UNK
     Route: 048
     Dates: start: 2021
  5. TRAMADOL. [Concomitant]
     Active Substance: TRAMADOL
  6. TRIKAFTA [Suspect]
     Active Substance: ELEXACAFTOR\IVACAFTOR\TEZACAFTOR
     Dosage: 1 BLUE TAB (150 MG IVA) IN AM AND 2 ORANGE TABS (100 MG ELEXA/ 50 MG TEZA/ 75 MG IVA) IN PM
     Route: 048
     Dates: start: 20210319, end: 2021
  7. TRIKAFTA [Suspect]
     Active Substance: ELEXACAFTOR\IVACAFTOR\TEZACAFTOR
     Indication: CYSTIC FIBROSIS
     Dosage: 2 TABLETS (100 MG ELEXACAFTOR/ 50 MG TEZACAFTOR/ 75 MG IVACAFTOR) AM; 1 TABLET (150 MG IVACAFTOR) PM
     Route: 048
     Dates: start: 20201111, end: 20210319
  8. TRIKAFTA [Suspect]
     Active Substance: ELEXACAFTOR\IVACAFTOR\TEZACAFTOR
     Dosage: SWITCHED AM DOSE WITH PM AND PM DOSE WITH AM
     Route: 048
     Dates: start: 2021, end: 2021
  9. VITAMIN B COMPLEX W C [ASCORBIC ACID;VITAMIN B COMPLEX] [Concomitant]
  10. VITAMIN D [COLECALCIFEROL] [Concomitant]
     Active Substance: CHOLECALCIFEROL
  11. MAGNESIUM [Concomitant]
     Active Substance: MAGNESIUM
  12. CREON [Concomitant]
     Active Substance: PANCRELIPASE AMYLASE\PANCRELIPASE LIPASE\PANCRELIPASE PROTEASE
  13. SERTRALINE [Concomitant]
     Active Substance: SERTRALINE HYDROCHLORIDE

REACTIONS (25)
  - Anxiety [Recovered/Resolved]
  - Lacrimation increased [Recovered/Resolved]
  - Breast tenderness [Unknown]
  - Arthralgia [Unknown]
  - Time perception altered [Unknown]
  - Insomnia [Recovering/Resolving]
  - Pruritus [Recovered/Resolved]
  - Headache [Unknown]
  - COVID-19 [Unknown]
  - Blood glucose fluctuation [Recovered/Resolved]
  - Fatigue [Not Recovered/Not Resolved]
  - Dyspepsia [Unknown]
  - Rash [Recovered/Resolved]
  - Upper-airway cough syndrome [Recovered/Resolved]
  - Respiratory tract congestion [Unknown]
  - Nausea [Unknown]
  - Pain [Unknown]
  - Hot flush [Unknown]
  - Feeling abnormal [Unknown]
  - Urticaria [Unknown]
  - Dizziness [Unknown]
  - Liver disorder [Unknown]
  - Hypoaesthesia [Not Recovered/Not Resolved]
  - Sunburn [Recovered/Resolved]
  - Pancreatitis relapsing [Unknown]

NARRATIVE: CASE EVENT DATE: 202011
